FAERS Safety Report 21973823 (Version 1)
Quarter: 2023Q1

REPORT INFORMATION
  Report Type: Spontaneous
  Country: US (occurrence: US)
  Receive Date: 20230209
  Receipt Date: 20230209
  Transmission Date: 20230418
  Serious: No
  Sender: FDA-Public Use
  Company Number: US-BIOGEN-2023BI01185749

PATIENT
  Sex: Female

DRUGS (2)
  1. TYSABRI [Suspect]
     Active Substance: NATALIZUMAB
     Indication: Multiple sclerosis
     Route: 050
     Dates: start: 20200603, end: 20210602
  2. TYSABRI [Suspect]
     Active Substance: NATALIZUMAB
     Route: 050
     Dates: start: 20210727

REACTIONS (5)
  - Lack of infusion site rotation [Not Recovered/Not Resolved]
  - Amnesia [Not Recovered/Not Resolved]
  - Ankle fracture [Unknown]
  - Foot fracture [Unknown]
  - Pneumonia [Not Recovered/Not Resolved]
